FAERS Safety Report 11582890 (Version 1)
Quarter: 2015Q4

REPORT INFORMATION
  Report Type: Spontaneous
  Country: US (occurrence: US)
  Receive Date: 20151001
  Receipt Date: 20151001
  Transmission Date: 20160304
  Serious: No
  Sender: FDA-Public Use
  Company Number: US-ROCHE-658763

PATIENT
  Age: 56 Year
  Sex: Male

DRUGS (4)
  1. NARDIL [Concomitant]
     Active Substance: PHENELZINE SULFATE
     Route: 065
  2. FLUDROCORTISONE ACETATE. [Concomitant]
     Active Substance: FLUDROCORTISONE ACETATE
     Route: 065
  3. PEGASYS [Suspect]
     Active Substance: PEGINTERFERON ALFA-2A
     Indication: HEPATITIS C
     Dosage: FORM: PRE-FILLED SYRINGES,
     Route: 065
     Dates: start: 20090731, end: 201001
  4. RIBAVIRIN. [Suspect]
     Active Substance: RIBAVIRIN
     Indication: HEPATITIS C
     Dosage: DIVIDED DOSES
     Route: 065
     Dates: start: 20090731, end: 201001

REACTIONS (11)
  - Fatigue [Not Recovered/Not Resolved]
  - Insomnia [Not Recovered/Not Resolved]
  - Blood potassium decreased [Not Recovered/Not Resolved]
  - Red blood cell count abnormal [Unknown]
  - Oxygen saturation decreased [Unknown]
  - White blood cell count decreased [Not Recovered/Not Resolved]
  - Dyspnoea [Unknown]
  - Red blood cell count decreased [Not Recovered/Not Resolved]
  - Dry skin [Not Recovered/Not Resolved]
  - Depression [Unknown]
  - Visual acuity reduced [Unknown]

NARRATIVE: CASE EVENT DATE: 201001
